FAERS Safety Report 21939649 (Version 5)
Quarter: 2023Q4

REPORT INFORMATION
  Report Type: Report from Study
  Country: CA (occurrence: CA)
  Receive Date: 20230201
  Receipt Date: 20231110
  Transmission Date: 20240110
  Serious: Yes (Other)
  Sender: FDA-Public Use
  Company Number: CA-JNJFOC-20220961780

PATIENT
  Age: 9 Year
  Sex: Male
  Weight: 36 kg

DRUGS (6)
  1. REMICADE [Suspect]
     Active Substance: INFLIXIMAB
     Indication: Crohn^s disease
     Dosage: EXPIRY DATE- 30-MAR-2025, 25-JUL-2025, 01-JUL-2025, MAM790115
     Route: 041
     Dates: start: 20220504
  2. REMICADE [Suspect]
     Active Substance: INFLIXIMAB
     Dosage: DOSE RELOADED WEEK 0 AS LAST WEEK, WEEK 2 NEXT WEEKS THEN WEEK 6 WITH A TDM AND THEN CONTINUE AT 200
     Route: 042
     Dates: start: 2023
  3. REMICADE [Suspect]
     Active Substance: INFLIXIMAB
     Route: 042
  4. REMICADE [Suspect]
     Active Substance: INFLIXIMAB
     Route: 042
  5. REMICADE [Suspect]
     Active Substance: INFLIXIMAB
     Route: 042
  6. REMICADE [Suspect]
     Active Substance: INFLIXIMAB
     Route: 042

REACTIONS (7)
  - Crohn^s disease [Not Recovered/Not Resolved]
  - Ear infection [Recovered/Resolved]
  - Drug specific antibody [Recovering/Resolving]
  - Drug level increased [Unknown]
  - Rash [Unknown]
  - Therapeutic response decreased [Unknown]
  - Off label use [Unknown]

NARRATIVE: CASE EVENT DATE: 20220919
